FAERS Safety Report 4905690-2 (Version None)
Quarter: 2006Q1

REPORT INFORMATION
  Report Type: 
  Country: None (occurrence: None)
  Receive Date: 20060203
  Receipt Date: 20060124
  Transmission Date: 20060701
  Serious: Yes (Disabling)
  Sender: FDA-Public Use
  Company Number: 2006012870

PATIENT
  Age: 80 Year
  Sex: Female
  Weight: 58.9676 kg

DRUGS (4)
  1. XALATAN [Suspect]
     Indication: GLAUCOMA
     Dosage: 2 DROP (1 DROP, 2 IN 1D), OPHTHALMIC
     Route: 047
  2. BETAGAN [Suspect]
     Indication: GLAUCOMA
     Dosage: 2 DROP (1 DROP, 2 IN 1 D), OPHTHALMIC
     Route: 047
  3. LEVOTHYROXINE SODIUM [Concomitant]
  4. WARFARIN SODIUM [Concomitant]

REACTIONS (7)
  - DISCOMFORT [None]
  - DRY EYE [None]
  - FEELING ABNORMAL [None]
  - FOREIGN BODY SENSATION IN EYES [None]
  - INFLAMMATION [None]
  - PHOTOSENSITIVITY REACTION [None]
  - VISUAL DISTURBANCE [None]
